FAERS Safety Report 8726871 (Version 2)
Quarter: 2015Q2

REPORT INFORMATION
  Report Type: Report from Study
  Country: US (occurrence: US)
  Receive Date: 20120816
  Receipt Date: 20150626
  Transmission Date: 20150821
  Serious: Yes (Hospitalization, Other)
  Sender: FDA-Public Use
  Company Number: US-ROCHE-1099782

PATIENT
  Sex: Male

DRUGS (8)
  1. ZINACEF [Concomitant]
     Active Substance: CEFUROXIME SODIUM
     Route: 058
  2. PEPCID [Concomitant]
     Active Substance: FAMOTIDINE
     Route: 065
  3. ACTIVASE [Suspect]
     Active Substance: ALTEPLASE
     Indication: PNEUMONIA
     Route: 042
  4. TYLENOL [Concomitant]
     Active Substance: ACETAMINOPHEN
  5. COLACE [Concomitant]
     Active Substance: DOCUSATE SODIUM
     Dosage: PM
     Route: 048
  6. ACTIVASE [Suspect]
     Active Substance: ALTEPLASE
     Indication: PERICARDITIS
     Dosage: 40 MG/90 ML AT 45 ML PER HOUR
     Route: 042
  7. KEFLEX [Concomitant]
     Active Substance: CEPHALEXIN
     Route: 048
  8. TRANXENE T-TAB [Concomitant]
     Active Substance: CLORAZEPATE DIPOTASSIUM
     Route: 048

REACTIONS (6)
  - Respiratory tract congestion [Unknown]
  - Extrasystoles [Unknown]
  - Cough [Unknown]
  - Hyperhidrosis [Unknown]
  - Sputum discoloured [Unknown]
  - Musculoskeletal pain [Unknown]
